FAERS Safety Report 19391910 (Version 2)
Quarter: 2021Q3

REPORT INFORMATION
  Report Type: Spontaneous
  Country: US (occurrence: US)
  Receive Date: 20210608
  Receipt Date: 20210919
  Transmission Date: 20211014
  Serious: No
  Sender: FDA-Public Use
  Company Number: US-RHYTHM PHARMACEUTICALS, INC.-2021RHM000018

PATIENT
  Age: 38 Year
  Sex: Male

DRUGS (5)
  1. IMCIVREE [Suspect]
     Active Substance: SETMELANOTIDE
  2. IMCIVREE [Suspect]
     Active Substance: SETMELANOTIDE
     Indication: OBESITY
     Dosage: 3MG (0.3ML)
     Route: 058
     Dates: start: 20210416
  3. IMCIVREE [Suspect]
     Active Substance: SETMELANOTIDE
  4. COVID VACCINE [Concomitant]
     Indication: IMMUNISATION
     Route: 065
  5. IMCIVREE [Suspect]
     Active Substance: SETMELANOTIDE
     Indication: OFF LABEL USE
     Route: 058

REACTIONS (6)
  - Hunger [Unknown]
  - Fatigue [Unknown]
  - Depression [Unknown]
  - Skin discolouration [Not Recovered/Not Resolved]
  - Off label use [Not Recovered/Not Resolved]
  - Injection site mass [Unknown]

NARRATIVE: CASE EVENT DATE: 20210416
